FAERS Safety Report 4591379-9 (Version None)
Quarter: 2005Q1

REPORT INFORMATION
  Report Type: 
  Country: None (occurrence: None)
  Receive Date: 20050222
  Receipt Date: 20050208
  Transmission Date: 20050727
  Serious: Yes (Hospitalization)
  Sender: FDA-Public Use
  Company Number: 2005026781

PATIENT
  Age: 76 Year
  Sex: Male

DRUGS (1)
  1. LIPITOR [Suspect]
     Indication: ILL-DEFINED DISORDER
     Dosage: ORAL
     Route: 048
     Dates: start: 20030101

REACTIONS (7)
  - CEREBRAL INFARCTION [None]
  - CHROMATURIA [None]
  - CONSTIPATION [None]
  - HYPOKINESIA [None]
  - MUSCLE SPASMS [None]
  - MYOCARDIAL INFARCTION [None]
  - NEOPLASM [None]
